FAERS Safety Report 9011730 (Version 2)
Quarter: 2013Q2

REPORT INFORMATION
  Report Type: Report from Study
  Country: JP (occurrence: JP)
  Receive Date: 20130114
  Receipt Date: 20130607
  Transmission Date: 20140414
  Serious: Yes (Other)
  Sender: FDA-Public Use
  Company Number: JP-009507513-2012SP018185

PATIENT
  Age: 56 Year
  Sex: Male
  Weight: 67 kg

DRUGS (18)
  1. PEGINTERFERON ALFA-2B [Suspect]
     Indication: CHRONIC HEPATITIS C
     Dosage: 1.5 ?G/KG, QW
     Route: 058
     Dates: start: 20120314, end: 20120819
  2. REBETOL [Suspect]
     Indication: CHRONIC HEPATITIS C
     Dosage: 800 MG, QD
     Route: 048
     Dates: start: 20120314, end: 20120403
  3. REBETOL [Suspect]
     Dosage: 600 MG, QD
     Route: 048
     Dates: start: 20120404, end: 20120417
  4. REBETOL [Suspect]
     Dosage: 400 MG, QD
     Route: 048
     Dates: start: 20120418, end: 20120612
  5. REBETOL [Suspect]
     Dosage: 600 MG, QD
     Route: 048
     Dates: start: 20120613, end: 20120828
  6. TELAVIC [Suspect]
     Indication: CHRONIC HEPATITIS C
     Dosage: 2250 MG, QD
     Route: 048
     Dates: start: 20120314, end: 20120316
  7. TELAVIC [Suspect]
     Dosage: 250 MG, TID
     Route: 048
     Dates: start: 20120321, end: 20120322
  8. TELAVIC [Suspect]
     Dosage: 500 MG, TID
     Route: 048
     Dates: start: 20120323, end: 20120606
  9. ZYLORIC [Suspect]
     Indication: CHRONIC HEPATITIS C
     Dosage: 100 MG, QD
     Route: 048
     Dates: start: 20120502, end: 20120509
  10. PREDNISOLONE [Concomitant]
     Indication: PROPHYLAXIS
     Dosage: 25 MG, QD
     Route: 048
     Dates: start: 20120324, end: 20120327
  11. PREDNISOLONE [Concomitant]
     Dosage: 20 MG, QD
     Route: 048
     Dates: start: 20120328, end: 20120403
  12. PREDNISOLONE [Concomitant]
     Dosage: 15 MG, QD
     Route: 048
     Dates: start: 20120404, end: 20120410
  13. PREDNISOLONE [Concomitant]
     Dosage: 10 MG, QD
     Route: 048
     Dates: start: 20120411, end: 20120417
  14. PREDNISOLONE [Concomitant]
     Dosage: 5 MG, QD
     Route: 048
     Dates: start: 20120418
  15. ASPARA [Concomitant]
     Dosage: 1800 MG, QD
     Route: 048
     Dates: start: 20120411, end: 20120612
  16. DEPAS [Concomitant]
     Dosage: 0.5 MG, QD
     Route: 048
     Dates: start: 20120418, end: 20120828
  17. PREDONINE [Concomitant]
     Dosage: 5 MG, QD
     Dates: end: 20120612
  18. ALESION [Concomitant]
     Dosage: 20 MG, QD
     Route: 048
     Dates: end: 20120828

REACTIONS (3)
  - Erythema [Recovered/Resolved]
  - Neutrophil count decreased [Recovered/Resolved]
  - White blood cell count decreased [Recovering/Resolving]
